FAERS Safety Report 13290591 (Version 1)
Quarter: 2017Q1

REPORT INFORMATION
  Report Type: Spontaneous
  Country: FR (occurrence: FR)
  Receive Date: 20170303
  Receipt Date: 20170303
  Transmission Date: 20170428
  Serious: Yes (Hospitalization, Other)
  Sender: FDA-Public Use
  Company Number: FR-WEST-WARD PHARMACEUTICALS CORP.-WW-125206

PATIENT
  Age: 56 Year
  Sex: Female

DRUGS (2)
  1. CERUBIDINE [Suspect]
     Active Substance: DAUNORUBICIN HYDROCHLORIDE
     Indication: ACUTE LEUKAEMIA
     Route: 042
     Dates: start: 20100506, end: 20100507
  2. CYTARABINE. [Suspect]
     Active Substance: CYTARABINE
     Indication: LEUKAEMIA
     Dates: start: 20100506, end: 20100513

REACTIONS (2)
  - Pneumonia fungal [Unknown]
  - Febrile bone marrow aplasia [Recovered/Resolved]

NARRATIVE: CASE EVENT DATE: 201003
